FAERS Safety Report 5528944-8 (Version None)
Quarter: 2007Q4

REPORT INFORMATION
  Report Type: 
  Country: None (occurrence: None)
  Receive Date: 20071129
  Receipt Date: 20071116
  Transmission Date: 20080405
  Serious: Yes (Other)
  Sender: FDA-Public Use
  Company Number: US-AMGEN-QUU253136

PATIENT
  Sex: Female

DRUGS (1)
  1. ENBREL [Suspect]
     Indication: PSORIASIS
     Route: 058
     Dates: start: 20040501

REACTIONS (5)
  - ABDOMINAL ADHESIONS [None]
  - FUNGAL INFECTION [None]
  - NASOPHARYNGITIS [None]
  - PSORIASIS [None]
  - UTERINE HAEMORRHAGE [None]
